FAERS Safety Report 12313812 (Version 1)
Quarter: 2016Q2

REPORT INFORMATION
  Report Type: Spontaneous
  Country: US (occurrence: US)
  Receive Date: 20160428
  Receipt Date: 20160428
  Transmission Date: 20160815
  Serious: No
  Sender: FDA-Public Use
  Company Number: US-BAUSCH-BL-2015-015089

PATIENT
  Age: 54 Year
  Sex: Male

DRUGS (1)
  1. ZYCLARA [Suspect]
     Active Substance: IMIQUIMOD
     Indication: ACTINIC KERATOSIS
     Dosage: FOR FIVE HOURS A DAY FOR FIVE DAYS
     Route: 065

REACTIONS (6)
  - Glossodynia [Unknown]
  - Skin irritation [Unknown]
  - Pruritus [Unknown]
  - Pyrexia [Unknown]
  - Swollen tongue [Unknown]
  - Ear disorder [Unknown]

NARRATIVE: CASE EVENT DATE: 20150602
